FAERS Safety Report 25159996 (Version 1)
Quarter: 2025Q2

REPORT INFORMATION
  Report Type: Report from Study
  Country: CA (occurrence: CA)
  Receive Date: 20250404
  Receipt Date: 20250404
  Transmission Date: 20250717
  Serious: Yes (Other)
  Sender: TEVA
  Company Number: CA-TEVA-VS-3318022

PATIENT
  Age: 35 Year
  Sex: Male

DRUGS (1)
  1. ZOLEDRONIC ACID [Suspect]
     Active Substance: ZOLEDRONIC ACID
     Indication: Osteoporosis
     Dosage: DOSE FORM: SOLUTION INTRAVENOUS
     Route: 065

REACTIONS (7)
  - Fall [Recovered/Resolved]
  - Tibia fracture [Recovered/Resolved]
  - Patella fracture [Recovered/Resolved]
  - Fibula fracture [Recovered/Resolved]
  - Joint dislocation [Recovered/Resolved]
  - Pelvic fracture [Recovered/Resolved]
  - Forearm fracture [Recovered/Resolved]
